FAERS Safety Report 11108759 (Version 1)
Quarter: 2015Q2

REPORT INFORMATION
  Report Type: Spontaneous
  Country: GB (occurrence: GB)
  Receive Date: 20150513
  Receipt Date: 20150513
  Transmission Date: 20150821
  Serious: Yes (Hospitalization)
  Sender: FDA-Public Use
  Company Number: GB-ACCORD-030624

PATIENT
  Age: 72 Year
  Sex: Female
  Weight: 78 kg

DRUGS (11)
  1. COCODAMOL [Concomitant]
     Active Substance: ACETAMINOPHEN\CODEINE PHOSPHATE
     Dosage: 8MG/500MG
  2. CLOPIDOGREL [Concomitant]
     Active Substance: CLOPIDOGREL BISULFATE
  3. AMLODIPINE [Concomitant]
     Active Substance: AMLODIPINE BESYLATE
  4. ATORVASTATIN [Concomitant]
     Active Substance: ATORVASTATIN
  5. PREDNISOLONE. [Concomitant]
     Active Substance: PREDNISOLONE
  6. LEVOTHYROXINE [Concomitant]
     Active Substance: LEVOTHYROXINE
     Dosage: ALSO RECEIVED 50 MG
  7. ALENDRONATE SODIUM/ALENDRONIC ACID [Concomitant]
  8. METHOTREXATE [Suspect]
     Active Substance: METHOTREXATE
     Indication: PRODUCT USED FOR UNKNOWN INDICATION
     Dosage: TAKING 5 TABLETS AT ONCE
  9. BENDROFLUMETHIAZIDE [Concomitant]
     Active Substance: BENDROFLUMETHIAZIDE
  10. LANSOPRAZOLE. [Concomitant]
     Active Substance: LANSOPRAZOLE
  11. CALCEOS [Concomitant]
     Active Substance: CALCIUM CARBONATE\CHOLECALCIFEROL

REACTIONS (4)
  - Pneumocystis jirovecii pneumonia [Recovering/Resolving]
  - Decreased appetite [Recovering/Resolving]
  - Nausea [Recovering/Resolving]
  - Abnormal loss of weight [Recovering/Resolving]

NARRATIVE: CASE EVENT DATE: 201410
